FAERS Safety Report 8478171-X (Version None)
Quarter: 2012Q2

REPORT INFORMATION
  Report Type: 
  Country: None (occurrence: None)
  Receive Date: 20120629
  Receipt Date: 20120622
  Transmission Date: 20120825
  Serious: Yes (Hospitalization, Other)
  Sender: FDA-Public Use
  Company Number: PHHY2012BR054417

PATIENT
  Sex: Male

DRUGS (3)
  1. METOPROLOL SUCCINATE [Concomitant]
     Indication: HYPERTENSION
     Dosage: 2 DF, DAILY
  2. DIOVAN [Suspect]
     Indication: HYPERTENSION
     Dosage: 1 TABLET, DAILY
  3. SIMVASTATIN [Concomitant]
     Dosage: 1 DF, DAILY

REACTIONS (4)
  - CHEST PAIN [None]
  - INFARCTION [None]
  - ENZYME LEVEL INCREASED [None]
  - DIABETES MELLITUS [None]
